FAERS Safety Report 6037989-3 (Version None)
Quarter: 2009Q1

REPORT INFORMATION
  Report Type: 
  Country: None (occurrence: None)
  Receive Date: 20090115
  Receipt Date: 20090105
  Transmission Date: 20090719
  Serious: No
  Sender: FDA-Public Use
  Company Number: GB-DENTSPLY-2009-0001-EUR

PATIENT
  Age: 66 Year
  Sex: Female

DRUGS (3)
  1. XYLOCAINE [Suspect]
     Route: 002
     Dates: start: 20081120, end: 20081120
  2. ADRENALIN ACID TARTRATE [Suspect]
     Route: 002
     Dates: start: 20081120, end: 20081120
  3. ANADIN [Concomitant]

REACTIONS (3)
  - BALANCE DISORDER [None]
  - INCONTINENCE [None]
  - NAUSEA [None]
